FAERS Safety Report 25998127 (Version 1)
Quarter: 2025Q4

REPORT INFORMATION
  Report Type: Spontaneous
  Country: US (occurrence: US)
  Receive Date: 20251105
  Receipt Date: 20251105
  Transmission Date: 20260117
  Serious: No
  Sender: Haleon PLC
  Company Number: US-HALEON-2269803

PATIENT
  Sex: Female

DRUGS (12)
  1. ADVIL [Suspect]
     Active Substance: IBUPROFEN
     Indication: Pain in extremity
  2. ADVIL [Suspect]
     Active Substance: IBUPROFEN
     Indication: Neck pain
  3. ADVIL [Suspect]
     Active Substance: IBUPROFEN
  4. ORENITRAM [Suspect]
     Active Substance: TREPROSTINIL
     Indication: Pulmonary arterial hypertension
     Dosage: TIME INTERVAL: 0.33333333 DAYS
     Route: 048
     Dates: start: 20250628
  5. ORENITRAM [Suspect]
     Active Substance: TREPROSTINIL
     Dosage: TIME INTERVAL: 0.33333333 DAYS
     Route: 048
  6. ORENITRAM [Suspect]
     Active Substance: TREPROSTINIL
     Dosage: TIME INTERVAL: 0.33333333 DAYS
     Route: 048
  7. ORENITRAM [Suspect]
     Active Substance: TREPROSTINIL
     Dosage: TIME INTERVAL: 0.33333333 DAYS: 1 TABLET OF 0.125MG, 0.25 MG AND 1 MG EACH
     Route: 048
  8. ORENITRAM [Suspect]
     Active Substance: TREPROSTINIL
     Dosage: TIME INTERVAL: 0.33333333 DAYS
     Route: 048
  9. ORENITRAM [Suspect]
     Active Substance: TREPROSTINIL
     Dosage: TIME INTERVAL: 0.33333333 DAYS: 1 TABLET OF 1 MG AND 3 TABLETS OF 0.25 MG),
     Route: 048
  10. ORENITRAM [Suspect]
     Active Substance: TREPROSTINIL
     Route: 048
  11. ORENITRAM [Suspect]
     Active Substance: TREPROSTINIL
     Route: 048
  12. OPSUMIT [Concomitant]
     Active Substance: MACITENTAN
     Indication: Product used for unknown indication

REACTIONS (4)
  - Pain in jaw [Unknown]
  - Therapeutic response delayed [Unknown]
  - Diarrhoea [Not Recovered/Not Resolved]
  - Incorrect dose administered [Unknown]
